FAERS Safety Report 9752166 (Version 1)
Quarter: 2013Q4

REPORT INFORMATION
  Report Type: Spontaneous
  Country: US (occurrence: None)
  Receive Date: 20131211
  Receipt Date: 20131211
  Transmission Date: 20140711
  Serious: No
  Sender: FDA-Public Use
  Company Number: None

PATIENT
  Age: 56 Year
  Sex: Male
  Weight: 81.65 kg

DRUGS (1)
  1. STELARA [Suspect]
     Dosage: 1 EVERY 12 WEEKS SUBCUTANEOUS
     Route: 058
     Dates: start: 20131128

REACTIONS (1)
  - Osteomyelitis [None]
